FAERS Safety Report 9369404 (Version 1)
Quarter: 2013Q2

REPORT INFORMATION
  Report Type: Spontaneous
  Country: US (occurrence: US)
  Receive Date: 20130626
  Receipt Date: 20130626
  Transmission Date: 20140414
  Serious: No
  Sender: FDA-Public Use
  Company Number: US-009507513-1306USA012443

PATIENT
  Age: 28 Year
  Sex: Female

DRUGS (1)
  1. SAPHRIS [Suspect]
     Indication: BIPOLAR I DISORDER
     Dosage: 10 MG, UNK
     Route: 060
     Dates: start: 20130531, end: 20130607

REACTIONS (2)
  - Dysgeusia [Recovering/Resolving]
  - Abdominal discomfort [Recovering/Resolving]
